FAERS Safety Report 20064683 (Version 3)
Quarter: 2021Q4

REPORT INFORMATION
  Report Type: Spontaneous
  Country: MX (occurrence: MX)
  Receive Date: 20211112
  Receipt Date: 20211221
  Transmission Date: 20220304
  Serious: No
  Sender: FDA-Public Use
  Company Number: MX-009507513-2111MEX002292

PATIENT
  Age: 74 Year
  Sex: Male

DRUGS (2)
  1. FIDAXOMICIN [Suspect]
     Active Substance: FIDAXOMICIN
     Indication: Clostridium difficile infection
     Dosage: 1 DOSAGE FORM, QD
     Route: 048
     Dates: start: 20210828
  2. FIDAXOMICIN [Suspect]
     Active Substance: FIDAXOMICIN
     Dosage: 1 DOSAGE FORM, QD
     Route: 048
     Dates: start: 2021

REACTIONS (7)
  - Weight decreased [Unknown]
  - Anal haemorrhage [Unknown]
  - Drug ineffective [Unknown]
  - Irritability [Unknown]
  - Amnesia [Unknown]
  - Product availability issue [Unknown]
  - Product supply issue [Unknown]

NARRATIVE: CASE EVENT DATE: 20210101
